FAERS Safety Report 9391699 (Version 1)
Quarter: 2013Q3

REPORT INFORMATION
  Report Type: Spontaneous
  Country: US (occurrence: US)
  Receive Date: 20130709
  Receipt Date: 20130709
  Transmission Date: 20140515
  Serious: Yes (Hospitalization)
  Sender: FDA-Public Use
  Company Number: US-B.I. PHARMACEUTICALS,INC./RIDGEFIELD-2013-BI-19749GD

PATIENT
  Age: 84 Year
  Sex: Male

DRUGS (1)
  1. DABIGATRAN [Suspect]

REACTIONS (5)
  - Subdural haematoma [Recovered/Resolved]
  - Brain herniation [Recovered/Resolved]
  - Headache [Unknown]
  - Confusional state [Unknown]
  - Gait disturbance [Unknown]
